FAERS Safety Report 24377216 (Version 1)
Quarter: 2024Q3

REPORT INFORMATION
  Report Type: Spontaneous
  Country: US (occurrence: US)
  Receive Date: 20240930
  Receipt Date: 20240930
  Transmission Date: 20241017
  Serious: No
  Sender: PRINSTON PHARMACEUTICAL
  Company Number: US-PRINSTON PHARMACEUTICAL INC.-2024PRN00134

PATIENT
  Age: 62 Year
  Sex: Female

DRUGS (2)
  1. ESCITALOPRAM [Suspect]
     Active Substance: ESCITALOPRAM OXALATE
     Indication: Anxiety
     Dosage: 20 MG, 1X/DAY IN THE MORNING
     Route: 048
     Dates: start: 202403, end: 202403
  2. HYDROXYZINE [Concomitant]
     Active Substance: HYDROXYZINE HYDROCHLORIDE

REACTIONS (8)
  - Abdominal distension [Recovering/Resolving]
  - Feeding disorder [Recovering/Resolving]
  - Dysstasia [Not Recovered/Not Resolved]
  - Dizziness [Not Recovered/Not Resolved]
  - Cold sweat [Recovering/Resolving]
  - Feeling abnormal [Recovering/Resolving]
  - Abdominal pain upper [Recovering/Resolving]
  - Product substitution issue [Recovered/Resolved]

NARRATIVE: CASE EVENT DATE: 20240301
